FAERS Safety Report 5150793-3 (Version None)
Quarter: 2006Q4

REPORT INFORMATION
  Report Type: 
  Country: None (occurrence: None)
  Receive Date: 20061108
  Receipt Date: 20061027
  Transmission Date: 20070319
  Serious: Yes (Hospitalization)
  Sender: FDA-Public Use
  Company Number: 2006PV000032

PATIENT
  Age: 65 Year
  Sex: Male

DRUGS (1)
  1. DEPOCYTE  (CYTARABINE)(50 MG ) [Suspect]
     Indication: METASTASES TO MENINGES
     Dosage: 50 MG; INTH
     Route: 037

REACTIONS (4)
  - AGGRESSION [None]
  - BALANCE DISORDER [None]
  - CONFUSIONAL STATE [None]
  - HEARING IMPAIRED [None]
